FAERS Safety Report 7693826-2 (Version None)
Quarter: 2011Q3

REPORT INFORMATION
  Report Type: 
  Country: None (occurrence: None)
  Receive Date: 20110819
  Receipt Date: 20110817
  Transmission Date: 20111222
  Serious: Yes (Hospitalization)
  Sender: FDA-Public Use
  Company Number: ES-ROCHE-797213

PATIENT
  Age: 4 Year
  Sex: Female

DRUGS (6)
  1. COLECALCIFEROL [Concomitant]
     Route: 048
     Dates: start: 20101221
  2. MAGNESIUM PIDOLATE [Concomitant]
     Dosage: REPORTED AS: ACTIMAG/ PIDOLATO MAGNESIO (A 100 ML BOTTLE)
     Route: 048
     Dates: start: 20101221
  3. VALCYTE [Suspect]
     Indication: EPSTEIN-BARR VIRUS INFECTION
     Dosage: STRENGTH: 50 MG/ML POWDER FOR SOLUTION
     Route: 048
     Dates: start: 20080701, end: 20101226
  4. PROGRAF [Concomitant]
     Indication: LIVER TRANSPLANT
     Route: 048
     Dates: start: 20080621
  5. VALCYTE [Suspect]
     Dosage: STRENGTH: 50 MG/ML POWDER FOR SOLUTION
     Route: 048
     Dates: start: 20101227, end: 20110427
  6. TEDIPRIMA [Concomitant]
     Indication: PSEUDOMONAS INFECTION
     Route: 048
     Dates: start: 20080808, end: 20110428

REACTIONS (1)
  - FEBRILE NEUTROPENIA [None]
